FAERS Safety Report 12899639 (Version 1)
Quarter: 2016Q4

REPORT INFORMATION
  Report Type: Spontaneous
  Country: US (occurrence: US)
  Receive Date: 20161101
  Receipt Date: 20161101
  Transmission Date: 20170207
  Serious: No
  Sender: FDA-Public Use
  Company Number: US-GLAXOSMITHKLINE-US2016159863

PATIENT
  Sex: Female

DRUGS (2)
  1. RIFAMPIN. [Interacting]
     Active Substance: RIFAMPIN
     Indication: LYME DISEASE
     Dosage: 600 MG, QD
  2. ATOVAQUONE ORAL SUSPENSION [Suspect]
     Active Substance: ATOVAQUONE
     Indication: LYME DISEASE
     Dosage: 750 MG, UNK
     Route: 048

REACTIONS (2)
  - Labelled drug-drug interaction medication error [Unknown]
  - Drug dispensing error [Unknown]
